FAERS Safety Report 8917847 (Version 1)
Quarter: 2012Q4

REPORT INFORMATION
  Report Type: 
  Country: US (occurrence: US)
  Receive Date: 20121120
  Receipt Date: 20121120
  Transmission Date: 20130627
  Serious: No
  Sender: FDA-Public Use
  Company Number: US-ASTRAZENECA-2012SE15104

PATIENT
  Age: 82 Year
  Sex: Male
  Weight: 73 kg

DRUGS (14)
  1. NEXIUM [Suspect]
     Indication: GASTROOESOPHAGEAL REFLUX DISEASE
     Route: 048
     Dates: start: 201201
  2. LISINOPRIL [Concomitant]
     Indication: HYPERTENSION
  3. WARFARIN [Concomitant]
     Indication: ANTICOAGULANT THERAPY
  4. TAMSULOSIN [Concomitant]
     Indication: PROSTATIC DISORDER
  5. FLNASTERIDE [Concomitant]
     Indication: PROSTATIC DISORDER
  6. DIGOXIN [Concomitant]
     Indication: ATRIAL FIBRILLATION
  7. DILTIAZEM [Concomitant]
     Indication: ATRIAL FIBRILLATION
  8. PRAVASTATIN [Concomitant]
     Indication: BLOOD CHOLESTEROL INCREASED
  9. VITAMIN B12 PLUS B COMPLEX [Concomitant]
  10. B COMPLEX [Concomitant]
  11. BABY ASPIRIN [Concomitant]
  12. FISH OIL [Concomitant]
  13. VITAMIN D [Concomitant]
  14. CVS BRAND FOR TYLENOL [Concomitant]
     Indication: ARTHRITIS

REACTIONS (3)
  - Dysphonia [Unknown]
  - Dizziness [Unknown]
  - Drug effect incomplete [Unknown]
